FAERS Safety Report 7738535-6 (Version None)
Quarter: 2011Q3

REPORT INFORMATION
  Report Type: 
  Country: None (occurrence: None)
  Receive Date: 20110906
  Receipt Date: 20110819
  Transmission Date: 20111222
  Serious: Yes (Other)
  Sender: FDA-Public Use
  Company Number: FK201101770

PATIENT
  Age: 72 Year
  Sex: 0
  Weight: 74.6 kg

DRUGS (6)
  1. CAPECITABINE [Suspect]
     Indication: COLON CANCER
     Dosage: 1950 MG, ORAL
     Route: 048
  2. DEXAMETHASONE [Concomitant]
  3. FYBOGEL (PLANTAGO OVATA) (PLANTAGO OVATA) [Concomitant]
  4. ORAMORPH (MORPHIN SULFATE) (MORPHINE SULFATE) [Concomitant]
  5. PRACETAMOL (PARACETAMOL) (PARACETAMOL) [Concomitant]
  6. OXALIPLATIN [Suspect]
     Indication: COLON CANCER
     Dosage: 250 MG, INTRAVENOUS (NOT OTHERWISE SPECIFIED)
     Route: 042

REACTIONS (4)
  - UNRESPONSIVE TO STIMULI [None]
  - STARING [None]
  - MUSCULAR WEAKNESS [None]
  - BLOOD PRESSURE INCREASED [None]
